FAERS Safety Report 7793661-0 (Version None)
Quarter: 2011Q4

REPORT INFORMATION
  Report Type: 
  Country: None (occurrence: None)
  Receive Date: 20111003
  Receipt Date: 20101122
  Transmission Date: 20120403
  Serious: No
  Sender: FDA-Public Use
  Company Number: US-BAYER-2010-005117

PATIENT
  Age: 72 Year
  Sex: Male

DRUGS (2)
  1. ANTI-DIABETICS [Concomitant]
     Indication: DIABETES MELLITUS
  2. LEVITRA [Suspect]
     Indication: ERECTILE DYSFUNCTION
     Dosage: 20 MG, PRN
     Route: 048

REACTIONS (1)
  - DYSPEPSIA [None]
